FAERS Safety Report 15304896 (Version 2)
Quarter: 2018Q4

REPORT INFORMATION
  Report Type: Spontaneous
  Country: US (occurrence: US)
  Receive Date: 20180822
  Receipt Date: 20180829
  Transmission Date: 20190204
  Serious: Yes (Other)
  Sender: FDA-Public Use
  Company Number: US-JNJFOC-20180815727

PATIENT
  Sex: Female
  Weight: 66.68 kg

DRUGS (2)
  1. NEUTROGENA SHEER ZINC DRY-TOUCH SUNSCREEN BROAD SPECTRUM SPF50 [Suspect]
     Active Substance: ZINC OXIDE
     Indication: PROPHYLAXIS AGAINST SOLAR RADIATION
     Dosage: EXPIRY: 30-NOV-2019
     Route: 061
     Dates: start: 2018, end: 2018
  2. SYNTHROID [Concomitant]
     Active Substance: LEVOTHYROXINE SODIUM
     Indication: THYROID DISORDER
     Route: 065
     Dates: end: 20180813

REACTIONS (2)
  - Application site reaction [Unknown]
  - Application site pruritus [Unknown]

NARRATIVE: CASE EVENT DATE: 2018
